FAERS Safety Report 7802641-8 (Version None)
Quarter: 2011Q4

REPORT INFORMATION
  Report Type: 
  Country: None (occurrence: None)
  Receive Date: 20111007
  Receipt Date: 20110926
  Transmission Date: 20120403
  Serious: Yes (Other)
  Sender: FDA-Public Use
  Company Number: PHHY2011JP86414

PATIENT
  Age: 75 Year
  Sex: Male

DRUGS (19)
  1. TASIGNA [Suspect]
     Indication: CHRONIC MYELOID LEUKAEMIA
     Dosage: 400 MG, UNK
     Route: 048
     Dates: start: 20090205, end: 20090218
  2. SAWATENE [Concomitant]
     Dosage: 750 MG,
  3. ASTOMIN [Concomitant]
     Dosage: 30 MG,
     Route: 048
  4. BUP-4 [Concomitant]
     Dosage: 10 MG,
  5. TASIGNA [Suspect]
     Dosage: 400 MG,
     Route: 048
     Dates: start: 20100409, end: 20100923
  6. MUCOSOLVAN [Concomitant]
     Dosage: 2 MG,
     Route: 048
  7. DEPAS [Concomitant]
     Dosage: 0.5 MG,
     Route: 048
  8. AMBROXOL HYDROCHLORIDE [Concomitant]
     Dosage: 45 MG,
     Route: 048
  9. TASIGNA [Suspect]
     Dosage: 400 MG, DAILY
     Route: 048
     Dates: start: 20101119
  10. URSO 250 [Concomitant]
  11. LIVACT [Concomitant]
     Dosage: 12.45 G,
     Route: 048
     Dates: start: 20100825
  12. TASIGNA [Suspect]
     Dosage: 400 MG AND 600 MG ALTERNATELY
     Dates: start: 20100924, end: 20101118
  13. MAGMITT [Concomitant]
     Dosage: 990 MG,
     Route: 048
  14. ZOPICLONE [Concomitant]
     Dosage: 75 MG,
     Route: 048
  15. ROHYPNOL [Concomitant]
     Dosage: 1 MG,
     Route: 048
  16. FLIVAS [Concomitant]
     Dosage: 50 MG,
     Route: 048
  17. MUCOSOLVAN [Concomitant]
     Dosage: 45 MG,
     Route: 048
     Dates: start: 20110423
  18. TASIGNA [Suspect]
     Dosage: 200 MG,
     Route: 048
     Dates: start: 20090219, end: 20090408
  19. NORVASC [Concomitant]
     Dosage: 5 MG,
     Route: 048

REACTIONS (2)
  - ELECTROCARDIOGRAM QT PROLONGED [None]
  - PNEUMONIA [None]
